FAERS Safety Report 4688973-3 (Version None)
Quarter: 2005Q2

REPORT INFORMATION
  Report Type: 
  Country: None (occurrence: None)
  Receive Date: 20050613
  Receipt Date: 20050310
  Transmission Date: 20051028
  Serious: Yes (Hospitalization)
  Sender: FDA-Public Use
  Company Number: US-MERCK-0503USA01936

PATIENT
  Age: 47 Year
  Sex: Male
  Weight: 109 kg

DRUGS (4)
  1. VIOXX [Suspect]
     Indication: OSTEOARTHRITIS
     Route: 048
     Dates: start: 20011127, end: 20030906
  2. CLARINEX [Concomitant]
     Route: 065
  3. SKELAXIN [Concomitant]
     Route: 065
  4. CLARITIN-D [Concomitant]
     Route: 065

REACTIONS (14)
  - ALANINE AMINOTRANSFERASE INCREASED [None]
  - BLOOD CHOLESTEROL INCREASED [None]
  - CHEST PAIN [None]
  - CORONARY ARTERY DISEASE [None]
  - CORONARY ARTERY OCCLUSION [None]
  - DERMATITIS CONTACT [None]
  - DIZZINESS [None]
  - EPIGASTRIC DISCOMFORT [None]
  - HIGH DENSITY LIPOPROTEIN DECREASED [None]
  - HYPERTENSION [None]
  - HYPOGLYCAEMIA [None]
  - LOW DENSITY LIPOPROTEIN INCREASED [None]
  - MYOCARDIAL INFARCTION [None]
  - RENAL DISORDER [None]
